FAERS Safety Report 10103357 (Version 1)
Quarter: 2014Q2

REPORT INFORMATION
  Report Type: Spontaneous
  Country: US (occurrence: US)
  Receive Date: 20140424
  Receipt Date: 20140424
  Transmission Date: 20141212
  Serious: Yes (Other)
  Sender: FDA-Public Use
  Company Number: US-BRISTOL-MYERS SQUIBB COMPANY-20336178

PATIENT
  Age: 86 Year
  Sex: 0

DRUGS (3)
  1. ELIQUIS [Suspect]
  2. ASPIRIN [Suspect]
  3. CLOPIDOGREL BISULFATE [Suspect]
     Dates: start: 201402

REACTIONS (1)
  - Gastrointestinal haemorrhage [Recovering/Resolving]
